FAERS Safety Report 7156494-4 (Version None)
Quarter: 2010Q4

REPORT INFORMATION
  Report Type: 
  Country: None (occurrence: None)
  Receive Date: 20101214
  Receipt Date: 20091113
  Transmission Date: 20110411
  Serious: No
  Sender: FDA-Public Use
  Company Number: US-ASTRAZENECA-2009SE26667

PATIENT
  Age: 73 Year
  Sex: Female

DRUGS (7)
  1. CRESTOR [Suspect]
     Route: 048
  2. WELLBUTRIN [Concomitant]
  3. LORAZEPAM [Concomitant]
  4. ACIPHEX [Concomitant]
  5. HTZ [Concomitant]
  6. TYLENOL (CAPLET) [Concomitant]
  7. MULTI-VITAMINS [Concomitant]

REACTIONS (1)
  - TENDONITIS [None]
